FAERS Safety Report 5821923-2 (Version None)
Quarter: 2008Q3

REPORT INFORMATION
  Report Type: 
  Country: None (occurrence: None)
  Receive Date: 20080724
  Receipt Date: 20080717
  Transmission Date: 20090109
  Serious: Yes (Death, Hospitalization)
  Sender: FDA-Public Use
  Company Number: US-GENENTECH-263417

PATIENT
  Sex: Male
  Weight: 64.1 kg

DRUGS (44)
  1. RITUXIMAB [Suspect]
     Indication: RHEUMATOID ARTHRITIS
     Dosage: 1000 MG, DAYS 1+15
     Route: 042
     Dates: start: 20070425
  2. RITUXIMAB [Suspect]
     Dosage: UNK, DAYS 1+15
     Route: 042
     Dates: start: 20061107
  3. METHOTREXATE SODIUM [Concomitant]
     Indication: RHEUMATOID ARTHRITIS
  4. ANTIBIOTICS (NOT SPECIFIED) [Concomitant]
     Indication: SPINAL DISORDER
  5. RED BLOOD CELLS [Concomitant]
     Indication: ANAEMIA
  6. PREDNISONE TAB [Concomitant]
     Indication: RHEUMATOID ARTHRITIS
     Dosage: 77 MG, QD
  7. PREDNISONE TAB [Concomitant]
     Dosage: 10 MG, QD
     Route: 048
     Dates: start: 20071125
  8. PREDNISONE TAB [Concomitant]
     Dosage: 10 MG, QD
     Route: 048
     Dates: start: 19990701, end: 20071119
  9. VASERETIC [Concomitant]
     Indication: DRUG USE FOR UNKNOWN INDICATION
  10. VICODIN [Concomitant]
     Indication: PAIN
     Dosage: UNK, PRN
     Route: 048
     Dates: start: 20071106, end: 20080102
  11. VICODIN [Concomitant]
     Indication: RHEUMATOID ARTHRITIS
     Dosage: UNK
     Route: 048
     Dates: start: 20080102
  12. PAXIL [Concomitant]
     Indication: ANXIETY
     Dosage: 20 MG, QD
     Route: 048
     Dates: start: 20031001
  13. PREVACID [Concomitant]
     Indication: GASTROOESOPHAGEAL REFLUX DISEASE
     Dosage: 30 MG, QD
  14. XANAX [Concomitant]
     Indication: ANXIETY
     Dosage: 0.125 MG, PRN
     Dates: start: 20010301
  15. COSOPT [Concomitant]
     Indication: GLAUCOMA
     Dosage: 1 GTT, BID
     Dates: start: 20000501
  16. TREXALL [Concomitant]
     Indication: RHEUMATOID ARTHRITIS
     Dosage: 10 MG, 1/WEEK
     Route: 048
     Dates: end: 20070823
  17. TREXALL [Concomitant]
     Dosage: 15 MG, 1/WEEK
     Route: 048
     Dates: end: 20070823
  18. TREXALL [Concomitant]
     Dosage: 10 MG, UNK
     Route: 048
     Dates: start: 20071124, end: 20080124
  19. CALCIUM/VITAMIN D [Concomitant]
     Indication: DRUG USE FOR UNKNOWN INDICATION
     Dosage: UNK, QD
  20. FOSAMAX [Concomitant]
     Indication: OSTEOPOROSIS
     Dosage: 70 MG, 1/WEEK
     Route: 048
     Dates: start: 20070306, end: 20070901
  21. FENTANYL-100 [Concomitant]
     Indication: DRUG USE FOR UNKNOWN INDICATION
     Dosage: 75 A?G, Q3D
  22. ULTRAM [Concomitant]
     Indication: PAIN
     Dosage: UNK, PRN
  23. RIFAMPIN [Concomitant]
     Indication: PROPHYLAXIS
     Dosage: 300 MG, BID
     Route: 048
     Dates: start: 20071010
  24. MINOCYCLINE HCL [Concomitant]
     Indication: PROPHYLAXIS
     Dosage: 100 MG, BID
     Route: 048
     Dates: start: 20071115
  25. OXYCONTIN [Concomitant]
     Indication: BACK PAIN
     Dosage: 10 MG, BID
     Route: 048
     Dates: start: 20070620, end: 20071007
  26. OXYCONTIN [Concomitant]
     Dosage: 20 MG, BID
     Route: 048
     Dates: start: 20071008, end: 20071105
  27. DURAGESIC-100 [Concomitant]
     Indication: BACK PAIN
     Dosage: 62.5 A?G, UNK
     Dates: start: 20080417
  28. DURAGESIC-100 [Concomitant]
     Indication: RHEUMATOID ARTHRITIS
     Dosage: 50 A?G, Q3D
     Dates: start: 20080402, end: 20080417
  29. DURAGESIC-100 [Concomitant]
     Dosage: 25 A?G, Q3D
     Dates: start: 20080212, end: 20080402
  30. GLUCOSAMINE [Concomitant]
     Indication: DRUG USE FOR UNKNOWN INDICATION
     Dosage: 3 TABLET, BID
     Dates: start: 20080209
  31. TRAMADOL HCL [Concomitant]
     Indication: BACK PAIN
     Dosage: 50 MG, BID
     Dates: start: 20080402
  32. BACTRIM [Concomitant]
     Indication: STAPHYLOCOCCAL INFECTION
     Dosage: 2 UNK, QD
     Route: 048
     Dates: start: 20071010, end: 20071115
  33. MULTI-VITAMIN [Concomitant]
     Indication: VITAMIN SUPPLEMENTATION
     Dosage: UNK
     Route: 048
     Dates: start: 20030101
  34. PROTONIX [Concomitant]
     Indication: GASTROOESOPHAGEAL REFLUX DISEASE
     Dosage: 40 MG, QD
     Route: 048
     Dates: start: 20070824
  35. ARANESP [Concomitant]
     Indication: HAEMOGLOBIN DECREASED
     Dosage: 25 A?G, 1/WEEK
     Route: 058
     Dates: start: 20071008, end: 20071105
  36. LORTAB [Concomitant]
     Indication: BACK PAIN
     Dosage: UNK
     Route: 048
     Dates: start: 20070901
  37. MAG-OX [Concomitant]
     Indication: CONSTIPATION
     Dosage: 49.6 MEQ, QD
     Route: 048
     Dates: start: 20071010, end: 20071105
  38. OS-CAL [Concomitant]
     Indication: OSTEOPOROSIS
     Dosage: 1 UNK, TID
     Route: 048
     Dates: start: 20071010
  39. MEDROL [Concomitant]
     Indication: RHEUMATOID ARTHRITIS
     Dosage: UNK
     Dates: start: 20071119, end: 20071124
  40. FOLIC ACID [Concomitant]
     Indication: RHEUMATOID ARTHRITIS
     Dosage: 4 MG, UNK
     Route: 048
     Dates: start: 20020301, end: 20061107
  41. FOLIC ACID [Concomitant]
     Dosage: 1 MG, QD
     Route: 048
     Dates: start: 20071108
  42. BONIVA [Concomitant]
     Indication: OSTEOPOROSIS
     Dosage: 150 MG, 1/MONTH
     Route: 048
     Dates: start: 20060501, end: 20070201
  43. HUMIRA [Concomitant]
     Indication: RHEUMATOID ARTHRITIS
     Dosage: 40 MG, UNK
     Route: 058
     Dates: start: 20050301, end: 20060909
  44. TYLENOL (CAPLET) [Concomitant]
     Indication: RHEUMATOID ARTHRITIS
     Dosage: 650 MG, PRN
     Route: 048
     Dates: start: 20040701

REACTIONS (1)
  - DEATH [None]
